FAERS Safety Report 6364820-9 (Version None)
Quarter: 2009Q3

REPORT INFORMATION
  Report Type: 
  Country: None (occurrence: None)
  Receive Date: 20090919
  Receipt Date: 20090730
  Transmission Date: 20100115
  Serious: No
  Sender: FDA-Public Use
  Company Number: US-ABBOTT-09P-163-0588879-00

PATIENT
  Sex: Female
  Weight: 109.87 kg

DRUGS (5)
  1. HUMIRA [Suspect]
     Indication: RHEUMATOID ARTHRITIS
     Route: 058
     Dates: start: 20070101, end: 20090201
  2. HUMIRA [Suspect]
     Route: 058
     Dates: start: 20090201
  3. HUMIRA [Suspect]
     Dosage: 40MG EVERY 1 OR 2 WEEKS AS NEEDED PER MD.
     Route: 058
  4. M.V.I. [Concomitant]
     Indication: DRUG USE FOR UNKNOWN INDICATION
  5. CALCIUM W/VITAMIN D [Concomitant]
     Indication: DRUG USE FOR UNKNOWN INDICATION

REACTIONS (4)
  - ARTHRALGIA [None]
  - ERYTHEMA [None]
  - RASH [None]
  - SWELLING [None]
